FAERS Safety Report 21930493 (Version 1)
Quarter: 2023Q1

REPORT INFORMATION
  Report Type: Spontaneous
  Country: US (occurrence: US)
  Receive Date: 20230131
  Receipt Date: 20230131
  Transmission Date: 20230418
  Serious: Yes (Other)
  Sender: FDA-Public Use
  Company Number: US-drreddys-SPO/USA/23/0160512

PATIENT
  Age: 66 Year
  Sex: Male

DRUGS (2)
  1. LENALIDOMIDE [Suspect]
     Active Substance: LENALIDOMIDE
     Indication: Plasma cell myeloma
     Dosage: BY MOUTH EVERY DAY FOR 3 WEEKS ON THEN 1 WEEK OFF
     Route: 048
     Dates: start: 20210927
  2. ASPIRIN [Concomitant]
     Active Substance: ASPIRIN
     Indication: Product used for unknown indication
     Dosage: ADULT LOW DOSE

REACTIONS (2)
  - Squamous cell carcinoma of skin [Not Recovered/Not Resolved]
  - Rash [Not Recovered/Not Resolved]
